FAERS Safety Report 5461122-X (Version None)
Quarter: 2007Q3

REPORT INFORMATION
  Report Type: 
  Country: None (occurrence: None)
  Receive Date: 20070920
  Receipt Date: 20070913
  Transmission Date: 20080115
  Serious: Yes (Disabling)
  Sender: FDA-Public Use
  Company Number: PHEH2007US11108

PATIENT
  Sex: Female

DRUGS (2)
  1. TEKTURNA [Suspect]
     Dosage: 300 MG, QD
     Route: 048
     Dates: start: 20070619, end: 20070702
  2. PREDNISONE [Concomitant]

REACTIONS (4)
  - DERMATITIS ALLERGIC [None]
  - NAUSEA [None]
  - RASH GENERALISED [None]
  - VOMITING [None]
